FAERS Safety Report 23233406 (Version 1)
Quarter: 2023Q4

REPORT INFORMATION
  Report Type: Spontaneous
  Country: US (occurrence: US)
  Receive Date: 20231128
  Receipt Date: 20231128
  Transmission Date: 20240109
  Serious: Yes (Other)
  Sender: FDA-Public Use
  Company Number: US-BMS-IMIDS-REMS_SI-10990768

PATIENT
  Sex: Female

DRUGS (2)
  1. LENALIDOMIDE [Suspect]
     Active Substance: LENALIDOMIDE
     Indication: Chronic lymphocytic leukaemia
     Dosage: DOSE REDUCED DUE TO DISEASE PROGRESSION.
  2. LENALIDOMIDE [Suspect]
     Active Substance: LENALIDOMIDE
     Indication: Chronic lymphocytic leukaemia
     Dosage: RESPONDING WELL

REACTIONS (5)
  - Chronic lymphocytic leukaemia [Unknown]
  - Disease progression [Unknown]
  - Deep vein thrombosis [Unknown]
  - Off label use [Unknown]
  - Contraindicated product administered [Unknown]
